FAERS Safety Report 9146354 (Version 1)
Quarter: 2013Q1

REPORT INFORMATION
  Report Type: Spontaneous
  Country: DE (occurrence: DE)
  Receive Date: 20130307
  Receipt Date: 20130307
  Transmission Date: 20140127
  Serious: Yes (Death)
  Sender: FDA-Public Use
  Company Number: DE-TEVA-387704GER

PATIENT
  Age: 75 Year
  Sex: Male
  Weight: 97 kg

DRUGS (7)
  1. SELEGILINE [Suspect]
     Indication: PARKINSON^S DISEASE
     Dosage: 5 MILLIGRAM DAILY;
     Route: 048
     Dates: end: 20120705
  2. METFORMIN [Concomitant]
     Indication: TYPE 2 DIABETES MELLITUS
     Dosage: 500 MILLIGRAM DAILY;
     Route: 048
     Dates: end: 20120705
  3. MIDODRIN [Concomitant]
     Route: 048
     Dates: end: 20120705
  4. XIPAMID [Concomitant]
     Indication: HYPERTENSION
     Dosage: 10 MILLIGRAM DAILY;
     Route: 048
     Dates: end: 20120705
  5. LEVODOPA-CARBIDOPA [Concomitant]
     Indication: PARKINSON^S DISEASE
     Dosage: 600 MILLIGRAM DAILY;
     Route: 048
     Dates: end: 20120705
  6. AMANTADIN [Concomitant]
     Indication: PARKINSON^S DISEASE
     Dosage: 100 MILLIGRAM DAILY;
     Route: 048
     Dates: end: 20120705
  7. PRAMIPEXOL [Concomitant]
     Indication: PARKINSON^S DISEASE
     Dosage: 1.05 MILLIGRAM DAILY;
     Route: 048
     Dates: end: 20120705

REACTIONS (2)
  - Cardiac arrest [Fatal]
  - Resuscitation [Fatal]
